FAERS Safety Report 23353819 (Version 1)
Quarter: 2024Q1

REPORT INFORMATION
  Report Type: Spontaneous
  Country: ID (occurrence: ID)
  Receive Date: 20240101
  Receipt Date: 20240101
  Transmission Date: 20240410
  Serious: Yes (Death, Other)
  Sender: FDA-Public Use
  Company Number: ID-BoehringerIngelheim-2023-BI-280320

PATIENT
  Age: 46 Year
  Sex: Female

DRUGS (1)
  1. AFATINIB [Suspect]
     Active Substance: AFATINIB
     Indication: Non-small cell lung cancer

REACTIONS (2)
  - Death [Fatal]
  - Malignant neoplasm progression [Unknown]
